FAERS Safety Report 14799917 (Version 1)
Quarter: 2018Q2

REPORT INFORMATION
  Report Type: Spontaneous
  Country: BR (occurrence: BR)
  Receive Date: 20180424
  Receipt Date: 20180424
  Transmission Date: 20180711
  Serious: Yes (Hospitalization)
  Sender: FDA-Public Use
  Company Number: BR-SA-2018SA109033

PATIENT
  Age: 26 Year
  Sex: Male

DRUGS (3)
  1. LEMTRADA [Suspect]
     Active Substance: ALEMTUZUMAB
     Indication: MULTIPLE SCLEROSIS RELAPSE
     Route: 041
     Dates: start: 20180321, end: 20180325
  2. ACYCLOVIR. [Concomitant]
     Active Substance: ACYCLOVIR
     Route: 065
  3. AMPICILLIN [Concomitant]
     Active Substance: AMPICILLIN
     Route: 065

REACTIONS (10)
  - Orthostatic hypotension [Unknown]
  - Body temperature [Unknown]
  - Hyperhidrosis [Unknown]
  - Chills [Unknown]
  - Abdominal pain [Unknown]
  - Myalgia [Recovered/Resolved]
  - Rash [Recovered/Resolved]
  - Diarrhoea [Recovered/Resolved]
  - Cytomegalovirus test positive [Unknown]
  - Headache [Unknown]

NARRATIVE: CASE EVENT DATE: 20180324
